FAERS Safety Report 4566355-2 (Version None)
Quarter: 2005Q1

REPORT INFORMATION
  Report Type: 
  Country: None (occurrence: None)
  Receive Date: 20050201
  Receipt Date: 20040706
  Transmission Date: 20050727
  Serious: Yes (Other)
  Sender: FDA-Public Use
  Company Number: PHFR2004IE02736

PATIENT
  Age: 30 Year
  Sex: Female

DRUGS (1)
  1. CLOZARIL [Suspect]
     Indication: SCHIZOPHRENIA
     Dosage: 75 MG/DAY
     Route: 048
     Dates: start: 19931008, end: 20040720

REACTIONS (3)
  - BLOOD GLUCOSE INCREASED [None]
  - HYPERCHOLESTEROLAEMIA [None]
  - THIRST [None]
